FAERS Safety Report 10602546 (Version 1)
Quarter: 2014Q4

REPORT INFORMATION
  Report Type: Other
  Country: US (occurrence: US)
  Receive Date: 20141124
  Receipt Date: 20141124
  Transmission Date: 20150529
  Serious: No
  Sender: FDA-Public Use
  Company Number: US-MYLANLABS-2014M1005868

PATIENT

DRUGS (3)
  1. ATENOLOL. [Concomitant]
     Active Substance: ATENOLOL
     Indication: HYPERTENSION
     Dosage: 25 MG, QD
     Route: 048
     Dates: start: 2012
  2. CLONAZEPAM TABLETS, USP [Suspect]
     Active Substance: CLONAZEPAM
     Indication: OFF LABEL USE
  3. CLONAZEPAM TABLETS, USP [Suspect]
     Active Substance: CLONAZEPAM
     Indication: ANXIETY
     Dosage: 0.5 MG, ONCE
     Route: 048
     Dates: start: 20140623, end: 20140623

REACTIONS (38)
  - Pruritus generalised [Recovered/Resolved]
  - Mouth haemorrhage [Recovered/Resolved]
  - Ear congestion [Recovered/Resolved]
  - Gait disturbance [Recovered/Resolved]
  - Musculoskeletal pain [Recovered/Resolved]
  - Diarrhoea [Recovered/Resolved]
  - Chest pain [Recovered/Resolved]
  - Tremor [Recovered/Resolved]
  - Formication [Recovered/Resolved]
  - Dyspnoea [Recovered/Resolved]
  - Headache [Recovered/Resolved]
  - Confusional state [Recovered/Resolved]
  - Memory impairment [Recovered/Resolved]
  - Disturbance in attention [Recovered/Resolved]
  - Mood altered [Recovered/Resolved]
  - Nervousness [Recovered/Resolved]
  - Irritability [Recovered/Resolved]
  - Muscle twitching [Recovered/Resolved]
  - Hyperhidrosis [Recovered/Resolved]
  - Abnormal dreams [Recovered/Resolved]
  - Coordination abnormal [Recovered/Resolved]
  - Bladder pain [Recovered/Resolved]
  - Arthralgia [Recovered/Resolved]
  - Dizziness [Recovered/Resolved]
  - Agitation [Recovered/Resolved]
  - Dysuria [Recovered/Resolved]
  - Chills [Recovered/Resolved]
  - Hallucination [Recovered/Resolved]
  - Anxiety [Recovered/Resolved]
  - Paraesthesia [Recovered/Resolved]
  - Insomnia [Recovered/Resolved]
  - Burning sensation [Recovered/Resolved]
  - Nightmare [Recovered/Resolved]
  - Dysarthria [Recovered/Resolved]
  - Pollakiuria [Recovered/Resolved]
  - Back pain [Recovered/Resolved]
  - Salivary hypersecretion [Recovered/Resolved]
  - Nausea [Recovered/Resolved]

NARRATIVE: CASE EVENT DATE: 20140623
